FAERS Safety Report 8032567-9 (Version None)
Quarter: 2012Q1

REPORT INFORMATION
  Report Type: 
  Country: None (occurrence: None)
  Receive Date: 20120110
  Receipt Date: 20111018
  Transmission Date: 20120608
  Serious: Yes (Other)
  Sender: FDA-Public Use
  Company Number: US-TYCO HEALTHCARE/MALLINCKRODT-T201102087

PATIENT
  Sex: Male
  Weight: 73.016 kg

DRUGS (1)
  1. OPTIRAY 160 [Suspect]
     Indication: COMPUTERISED TOMOGRAM
     Dosage: 98 ML, SINGLE
     Route: 042
     Dates: start: 20111018, end: 20111018

REACTIONS (3)
  - HEADACHE [None]
  - THROAT TIGHTNESS [None]
  - PRURITUS [None]
